FAERS Safety Report 4661439-2 (Version None)
Quarter: 2005Q2

REPORT INFORMATION
  Report Type: 
  Country: None (occurrence: None)
  Receive Date: 20050513
  Receipt Date: 20050503
  Transmission Date: 20051028
  Serious: Yes (Other)
  Sender: FDA-Public Use
  Company Number: US-GLAXOSMITHKLINE-A0558218A

PATIENT
  Age: 45 Year
  Sex: Female

DRUGS (5)
  1. PAXIL [Suspect]
     Indication: ANXIETY
     Route: 048
     Dates: end: 20040101
  2. VIOXX [Concomitant]
  3. NEXIUM [Concomitant]
  4. ULTRAM [Concomitant]
  5. MECLIZINE [Concomitant]

REACTIONS (7)
  - ABDOMINAL PAIN [None]
  - DRUG WITHDRAWAL SYNDROME [None]
  - SUICIDE ATTEMPT [None]
  - TINNITUS [None]
  - TREMOR [None]
  - VERTIGO [None]
  - VOMITING [None]
